FAERS Safety Report 18790657 (Version 1)
Quarter: 2021Q1

REPORT INFORMATION
  Report Type: Spontaneous
  Country: US (occurrence: US)
  Receive Date: 20210126
  Receipt Date: 20210126
  Transmission Date: 20210419
  Serious: Yes (Other)
  Sender: FDA-Public Use
  Company Number: US-ROCHE-2756634

PATIENT
  Age: 22 Day
  Sex: Female

DRUGS (1)
  1. VALCYTE [Suspect]
     Active Substance: VALGANCICLOVIR HYDROCHLORIDE
     Indication: CONGENITAL CYTOMEGALOVIRUS INFECTION
     Dosage: ONGOING: YES
     Route: 048
     Dates: start: 20201231

REACTIONS (3)
  - Off label use [Unknown]
  - Intentional product use issue [Unknown]
  - Hyperkalaemia [Not Recovered/Not Resolved]

NARRATIVE: CASE EVENT DATE: 20210120
